FAERS Safety Report 5946597-1 (Version None)
Quarter: 2008Q4

REPORT INFORMATION
  Report Type: 
  Country: None (occurrence: None)
  Receive Date: 20081110
  Receipt Date: 20081027
  Transmission Date: 20090506
  Serious: Yes (Death)
  Sender: FDA-Public Use
  Company Number: TH-ROCHE-595713

PATIENT
  Sex: Female

DRUGS (3)
  1. ISOTRETINOIN [Suspect]
     Indication: BRAIN STEM GLIOMA
     Dosage: GIVEN FOR 21 DAYS OF 28 DAY CYCLE
     Route: 048
  2. TEMOZOLOMIDE [Suspect]
     Indication: BRAIN STEM GLIOMA
     Route: 048
  3. TEMOZOLOMIDE [Suspect]
     Route: 048

REACTIONS (2)
  - BRAIN STEM GLIOMA [None]
  - MALIGNANT NEOPLASM PROGRESSION [None]
